FAERS Safety Report 10484647 (Version 1)
Quarter: 2014Q3

REPORT INFORMATION
  Report Type: Spontaneous
  Country: US (occurrence: None)
  Receive Date: 20140926
  Receipt Date: 20140926
  Transmission Date: 20150326
  Serious: Yes (Other)
  Sender: FDA-Public Use
  Company Number: ABR_01822_2014

PATIENT
  Sex: Male

DRUGS (2)
  1. GLIADEL [Suspect]
     Active Substance: CARMUSTINE
     Indication: PRODUCT USED FOR UNKNOWN INDICATION
     Dosage: DF
  2. DURASEAL [Suspect]
     Active Substance: BOVINE TYPE I COLLAGEN
     Indication: PRODUCT USED FOR UNKNOWN INDICATION
     Dosage: DF

REACTIONS (3)
  - Implant site extravasation [None]
  - Impaired healing [None]
  - Drug interaction [None]
